FAERS Safety Report 6762468-5 (Version None)
Quarter: 2010Q2

REPORT INFORMATION
  Report Type: 
  Country: None (occurrence: None)
  Receive Date: 20100609
  Receipt Date: 20100609
  Transmission Date: 20101027
  Serious: Yes (Life-Threatening, Hospitalization, Disabling, Other)
  Sender: FDA-Public Use
  Company Number: None

PATIENT
  Age: 16 Month
  Sex: Female
  Weight: 13.6079 kg

DRUGS (3)
  1. CHILDRENS TYLENOL PRODUCT [Suspect]
     Indication: IMMUNISATION
     Dates: start: 20081124
  2. CHILDRENS TYLENOL PRODUCT [Suspect]
     Indication: PYREXIA
     Dates: start: 20081124
  3. CHILDRENS TYLENOL PRODUCT [Suspect]
     Indication: TEETHING
     Dates: start: 20081124

REACTIONS (17)
  - ABASIA [None]
  - APHASIA [None]
  - BACTERIAL TEST POSITIVE [None]
  - BRAIN MIDLINE SHIFT [None]
  - BRAIN OEDEMA [None]
  - CARDIAC FAILURE [None]
  - CHILDHOOD DISINTEGRATIVE DISORDER [None]
  - CONDUCTION DISORDER [None]
  - CONVULSION [None]
  - CRYING [None]
  - LUNG INFECTION [None]
  - PNEUMONIA [None]
  - PRODUCT QUALITY ISSUE [None]
  - RENAL FAILURE [None]
  - RESPIRATORY FAILURE [None]
  - SWELLING [None]
  - UNEVALUABLE EVENT [None]
